FAERS Safety Report 11025669 (Version 1)
Quarter: 2015Q2

REPORT INFORMATION
  Report Type: Spontaneous
  Country: US (occurrence: US)
  Receive Date: 20150414
  Receipt Date: 20150414
  Transmission Date: 20150821
  Serious: Yes (Hospitalization)
  Sender: FDA-Public Use
  Company Number: US-PFIZER INC-2015122608

PATIENT
  Age: 55 Year
  Sex: Female
  Weight: 72.5 kg

DRUGS (1)
  1. DUAVEE [Suspect]
     Active Substance: BAZEDOXIFENE ACETATE\ESTROGENS, CONJUGATED
     Dosage: UNK, (0.45 ESTROGEN), DAILY
     Route: 048
     Dates: start: 201408

REACTIONS (1)
  - Pulmonary embolism [Unknown]
